FAERS Safety Report 13514259 (Version 1)
Quarter: 2017Q2

REPORT INFORMATION
  Report Type: Spontaneous
  Country: US (occurrence: US)
  Receive Date: 20170504
  Receipt Date: 20170504
  Transmission Date: 20170830
  Serious: No
  Sender: FDA-Public Use
  Company Number: US-ABBVIE-16P-163-1663064-00

PATIENT
  Age: 62 Year
  Sex: Female
  Weight: 41.77 kg

DRUGS (8)
  1. JANTOVEN [Concomitant]
     Active Substance: WARFARIN SODIUM
     Indication: COAGULOPATHY
  2. EFFEXOR [Concomitant]
     Active Substance: VENLAFAXINE HYDROCHLORIDE
     Indication: BIPOLAR DISORDER
  3. TRAZODONE [Concomitant]
     Active Substance: TRAZODONE HYDROCHLORIDE
     Indication: BIPOLAR DISORDER
  4. CREON [Suspect]
     Active Substance: PANCRELIPASE AMYLASE\PANCRELIPASE LIPASE\PANCRELIPASE PROTEASE
     Indication: PANCREATIC FAILURE
     Dosage: 2 CAPSULES WITH EACH MEAL AND SNACK
     Route: 048
     Dates: start: 201602, end: 201604
  5. CREON [Suspect]
     Active Substance: PANCRELIPASE AMYLASE\PANCRELIPASE LIPASE\PANCRELIPASE PROTEASE
     Dosage: 1 CAPSULE WITH EACH MEAL AND SNACKS
     Route: 048
     Dates: start: 201604
  6. LITHIUM. [Concomitant]
     Active Substance: LITHIUM
     Indication: BIPOLAR DISORDER
  7. PHENERGAN (NON-ABBVIE) [Concomitant]
     Indication: NAUSEA
     Dosage: PRN
  8. GLYCOPYRROLATE. [Concomitant]
     Active Substance: GLYCOPYRROLATE
     Indication: GASTRIC ULCER

REACTIONS (2)
  - Contusion [Recovered/Resolved]
  - Prothrombin time prolonged [Recovered/Resolved]

NARRATIVE: CASE EVENT DATE: 201604
